FAERS Safety Report 8334594-0 (Version None)
Quarter: 2012Q2

REPORT INFORMATION
  Report Type: 
  Country: None (occurrence: None)
  Receive Date: 20120503
  Receipt Date: 20120425
  Transmission Date: 20120825
  Serious: Yes (Hospitalization)
  Sender: FDA-Public Use
  Company Number: BE-GILEAD-2012-0054138

PATIENT
  Sex: Male

DRUGS (2)
  1. AMBRISENTAN [Suspect]
     Indication: PULMONARY ARTERIAL HYPERTENSION
     Dosage: 5 MG, UNK
     Route: 048
     Dates: start: 20090519
  2. AMBRISENTAN [Suspect]
     Dosage: 10 MG, UNK
     Route: 048
     Dates: start: 20100526

REACTIONS (1)
  - CARDIAC FAILURE [None]
